FAERS Safety Report 8976373 (Version 1)
Quarter: 2012Q4

REPORT INFORMATION
  Report Type: 
  Country: FR (occurrence: FR)
  Receive Date: 20121220
  Receipt Date: 20121220
  Transmission Date: 20130627
  Serious: Yes (Hospitalization)
  Sender: FDA-Public Use
  Company Number: FR-SANOFI-AVENTIS-2012SA092655

PATIENT
  Age: 46 Year
  Sex: Male

DRUGS (6)
  1. TERCIAN [Suspect]
     Indication: SUICIDE ATTEMPT
     Route: 048
  2. PLAVIX [Suspect]
     Indication: SUICIDE ATTEMPT
     Route: 065
  3. BENZODIAZEPINE DERIVATIVES [Suspect]
     Indication: SUICIDE ATTEMPT
     Route: 065
  4. NORSET [Concomitant]
     Route: 048
  5. IMOVANE [Concomitant]
     Route: 048
  6. LYSANXIA [Concomitant]
     Route: 048

REACTIONS (5)
  - Coma [Recovered/Resolved]
  - Toxicity to various agents [Unknown]
  - Toxicity to various agents [Recovered/Resolved]
  - Rhabdomyolysis [Recovered/Resolved]
  - Pneumonia aspiration [Recovered/Resolved]
